FAERS Safety Report 18199012 (Version 6)
Quarter: 2020Q4

REPORT INFORMATION
  Report Type: Report from Study
  Country: US (occurrence: US)
  Receive Date: 20200826
  Receipt Date: 20201124
  Transmission Date: 20210113
  Serious: Yes (Hospitalization)
  Sender: FDA-Public Use
  Company Number: US-EISAI MEDICAL RESEARCH-EC-2020-079485

PATIENT
  Age: 76 Year
  Sex: Male
  Weight: 149.1 kg

DRUGS (24)
  1. PLACEBO [Suspect]
     Active Substance: UNSPECIFIED INGREDIENT
     Route: 041
     Dates: start: 20200807, end: 20200807
  2. POTASSIUM CHLORIDE. [Concomitant]
     Active Substance: POTASSIUM CHLORIDE
     Dates: start: 199709
  3. DESITIN MAXIMUM STRENGTH [Concomitant]
     Dates: start: 20200301
  4. KETOCONAZOLE. [Concomitant]
     Active Substance: KETOCONAZOLE
     Dates: start: 20200518
  5. VALIUM [Concomitant]
     Active Substance: DIAZEPAM
     Dates: start: 20200806, end: 20200806
  6. PLACEBO [Suspect]
     Active Substance: UNSPECIFIED INGREDIENT
     Indication: HEPATOCELLULAR CARCINOMA
     Route: 041
     Dates: start: 20200130, end: 20200717
  7. MIRALAX [Concomitant]
     Active Substance: POLYETHYLENE GLYCOL 3350
     Dates: start: 201901
  8. ADVIL [Concomitant]
     Active Substance: IBUPROFEN
     Dates: start: 200509
  9. MELATONIN [Concomitant]
     Active Substance: MELATONIN
     Dates: start: 20200701
  10. LENVATINIB [Suspect]
     Active Substance: LENVATINIB
     Indication: HEPATOCELLULAR CARCINOMA
     Dosage: STARTING DOSE AT 12 MG, FLUCTUATED DOSAGE
     Route: 048
     Dates: start: 20200130, end: 20200806
  11. COZAAR [Concomitant]
     Active Substance: LOSARTAN POTASSIUM
     Dates: start: 199709
  12. HYDROCHLOROTHIAZIDE. [Concomitant]
     Active Substance: HYDROCHLOROTHIAZIDE
     Dates: start: 199709
  13. TORSEMIDE. [Concomitant]
     Active Substance: TORSEMIDE
     Dates: start: 199709
  14. PREDNISONE. [Suspect]
     Active Substance: PREDNISONE
     Indication: PERICARDITIS
     Route: 048
     Dates: start: 20200908
  15. TORSEMIDE. [Concomitant]
     Active Substance: TORSEMIDE
     Dates: start: 20200421, end: 20200817
  16. NORVASC [Concomitant]
     Active Substance: AMLODIPINE BESYLATE
     Dates: start: 20200206
  17. LEVOTHYROXINE SODIUM. [Concomitant]
     Active Substance: LEVOTHYROXINE SODIUM
     Dates: start: 20200808
  18. CLONIDINE. [Concomitant]
     Active Substance: CLONIDINE
     Dates: start: 20200717, end: 20200814
  19. CLINAGEL [Concomitant]
     Dates: start: 20200807, end: 20200826
  20. EMLA [Concomitant]
     Active Substance: LIDOCAINE\PRILOCAINE
     Dates: start: 20200311
  21. CIPROFLOXACIN HYDROCHLORIDE. [Concomitant]
     Active Substance: CIPROFLOXACIN HYDROCHLORIDE
     Dates: start: 20200626
  22. LEVOTHYROXINE SODIUM. [Concomitant]
     Active Substance: LEVOTHYROXINE SODIUM
     Dates: start: 20200511, end: 20200807
  23. LENVATINIB [Suspect]
     Active Substance: LENVATINIB
     Route: 048
     Dates: start: 20200807, end: 20200807
  24. MINOXIDIL. [Concomitant]
     Active Substance: MINOXIDIL
     Dates: start: 199709

REACTIONS (2)
  - Hypertension [Recovered/Resolved]
  - Cardiac failure [Not Recovered/Not Resolved]

NARRATIVE: CASE EVENT DATE: 20200814
